FAERS Safety Report 12412631 (Version 1)
Quarter: 2016Q2

REPORT INFORMATION
  Report Type: Spontaneous
  Country: US (occurrence: US)
  Receive Date: 20160527
  Receipt Date: 20160527
  Transmission Date: 20160815
  Serious: No
  Sender: FDA-Public Use
  Company Number: US-ELI_LILLY_AND_COMPANY-US201605009224

PATIENT
  Age: 40 Year
  Sex: Female

DRUGS (6)
  1. HUMALOG [Suspect]
     Active Substance: INSULIN LISPRO
     Indication: TYPE 1 DIABETES MELLITUS
     Dosage: ON A SLIDING SCALE
     Route: 065
     Dates: start: 201101
  2. HUMALOG [Suspect]
     Active Substance: INSULIN LISPRO
     Dosage: ON A SLIDING SCALE
     Route: 065
     Dates: start: 201602
  3. HUMALOG [Suspect]
     Active Substance: INSULIN LISPRO
     Dosage: ON A SLIDING SCALE
     Route: 065
  4. LANTUS [Concomitant]
     Active Substance: INSULIN GLARGINE
     Dosage: UNK, EACH MORNING
  5. HUMALOG [Suspect]
     Active Substance: INSULIN LISPRO
     Dosage: ON A SLIDING SCALE
     Route: 065
  6. LANTUS [Concomitant]
     Active Substance: INSULIN GLARGINE
     Dosage: UNK, EACH EVENING

REACTIONS (2)
  - Drug ineffective [Recovered/Resolved]
  - Blood glucose abnormal [Recovered/Resolved]

NARRATIVE: CASE EVENT DATE: 201604
